FAERS Safety Report 10593973 (Version 2)
Quarter: 2014Q4

REPORT INFORMATION
  Report Type: Spontaneous
  Country: MY (occurrence: MY)
  Receive Date: 20141119
  Receipt Date: 20141119
  Transmission Date: 20150529
  Serious: Yes (Other)
  Sender: FDA-Public Use
  Company Number: MY-PFIZER INC-2014150909

PATIENT
  Age: 42 Year
  Sex: Female
  Weight: 70 kg

DRUGS (13)
  1. DILANTIN [Suspect]
     Active Substance: PHENYTOIN
     Indication: STATUS EPILEPTICUS
     Dosage: 750 MG STAT
     Route: 042
     Dates: start: 20130116, end: 20130116
  2. DILANTIN [Suspect]
     Active Substance: PHENYTOIN
     Dosage: 100 MG, 3X/DAY
     Route: 042
     Dates: start: 20130116, end: 20130117
  3. EPILIM [Suspect]
     Active Substance: VALPROATE SODIUM
     Indication: STATUS EPILEPTICUS
     Dosage: 1.4 G 30 MINS STAT
     Route: 042
     Dates: start: 20130116, end: 20130116
  4. FRUSEMIDE [Concomitant]
     Active Substance: FUROSEMIDE
     Indication: FLUID RETENTION
     Dosage: 20 MG STAT
     Route: 042
     Dates: start: 20130118, end: 20130118
  5. AZITHROMYCIN [Concomitant]
     Active Substance: AZITHROMYCIN ANHYDROUS
     Indication: LUNG INFECTION
     Dosage: 500 MG, 24 HOURLY
     Route: 042
     Dates: start: 20130117, end: 20130119
  6. EPILIM [Suspect]
     Active Substance: VALPROATE SODIUM
     Dosage: 70 MG/H
     Route: 042
     Dates: start: 20130116, end: 20130118
  7. CEFTRIAXONE. [Concomitant]
     Active Substance: CEFTRIAXONE
     Indication: PNEUMONIA
     Dosage: 2 G, 1X/DAY
     Route: 042
     Dates: start: 20130116
  8. DILANTIN [Suspect]
     Active Substance: PHENYTOIN
     Dosage: 120 MG, UNK
     Route: 042
     Dates: start: 20130117, end: 20130119
  9. LEVETIRACETAM. [Concomitant]
     Active Substance: LEVETIRACETAM
     Indication: STATUS EPILEPTICUS
     Dosage: 1 G STAT
     Route: 042
     Dates: start: 20130116, end: 20130116
  10. LEVETIRACETAM. [Concomitant]
     Active Substance: LEVETIRACETAM
     Indication: STATUS EPILEPTICUS
     Dosage: 1.5 G, 2X/DAY
     Route: 048
     Dates: start: 20130118
  11. EPILIM [Suspect]
     Active Substance: VALPROATE SODIUM
     Dosage: 400 MG, 3X/DAY
     Route: 042
     Dates: start: 20130118, end: 20130119
  12. PANTOPRAZOLE [Concomitant]
     Active Substance: PANTOPRAZOLE SODIUM
     Indication: PROPHYLAXIS AGAINST GASTROINTESTINAL ULCER
     Dosage: 40 MG, 1X/DAY
     Route: 042
     Dates: start: 20130116, end: 20130116
  13. DIAZEPAM. [Concomitant]
     Active Substance: DIAZEPAM
     Indication: STATUS EPILEPTICUS
     Dosage: 5MG STAT
     Route: 042
     Dates: start: 20130116, end: 20130116

REACTIONS (6)
  - Hepatotoxicity [Unknown]
  - International normalised ratio increased [Unknown]
  - Alanine aminotransferase increased [Unknown]
  - Prothrombin time prolonged [Unknown]
  - Platelet count decreased [Unknown]
  - Aspartate aminotransferase increased [Unknown]

NARRATIVE: CASE EVENT DATE: 20130116
